FAERS Safety Report 18875985 (Version 1)
Quarter: 2021Q1

REPORT INFORMATION
  Report Type: Spontaneous
  Country: US (occurrence: US)
  Receive Date: 20210210
  Receipt Date: 20210210
  Transmission Date: 20210420
  Serious: Yes (Disabling, Other)
  Sender: FDA-Public Use
  Company Number: US-TEVA-2021-US-1878628

PATIENT
  Sex: Female

DRUGS (4)
  1. OPIOIDS [Suspect]
     Active Substance: UNSPECIFIED INGREDIENT
     Route: 064
  2. PERCOCET [Suspect]
     Active Substance: ACETAMINOPHEN\OXYCODONE HYDROCHLORIDE
     Route: 064
  3. METHADONE [Suspect]
     Active Substance: METHADONE HYDROCHLORIDE
     Route: 064
  4. MORPHINE [Suspect]
     Active Substance: MORPHINE
     Route: 064

REACTIONS (6)
  - Drug withdrawal syndrome neonatal [Unknown]
  - Physical disability [Not Recovered/Not Resolved]
  - Pain [Unknown]
  - Drug dependence [Unknown]
  - Mental disability [Not Recovered/Not Resolved]
  - Foetal exposure during pregnancy [Unknown]
